FAERS Safety Report 5407148-3 (Version None)
Quarter: 2007Q3

REPORT INFORMATION
  Report Type: 
  Country: None (occurrence: None)
  Receive Date: 20070807
  Receipt Date: 20070731
  Transmission Date: 20080115
  Serious: Yes (Life-Threatening, Hospitalization)
  Sender: FDA-Public Use
  Company Number: B0482026A

PATIENT
  Age: 63 Year
  Sex: Female

DRUGS (4)
  1. PANADOL [Suspect]
     Dosage: 3G PER DAY
     Route: 048
     Dates: start: 20060801, end: 20070701
  2. ARCOXIA [Suspect]
     Dosage: 60MG PER DAY
     Route: 048
     Dates: start: 20060801, end: 20070701
  3. THYROXIN [Concomitant]
     Indication: HYPOTHYROIDISM
     Dosage: .1MG UNKNOWN
     Route: 048
     Dates: start: 20040101
  4. ARTHRYL [Concomitant]
     Dosage: 1.5G UNKNOWN
     Route: 048
     Dates: start: 20060801, end: 20070701

REACTIONS (2)
  - AGRANULOCYTOSIS [None]
  - NEUTROPENIA [None]
